FAERS Safety Report 15065349 (Version 1)
Quarter: 2018Q2

REPORT INFORMATION
  Report Type: Spontaneous
  Country: US (occurrence: US)
  Receive Date: 20180626
  Receipt Date: 20180626
  Transmission Date: 20180711
  Serious: Yes (Hospitalization, Other)
  Sender: FDA-Public Use
  Company Number: US-ZYDUS-020659

PATIENT
  Age: 70 Year
  Sex: Female

DRUGS (3)
  1. PREDNISONE. [Suspect]
     Active Substance: PREDNISONE
     Indication: SYSTEMIC LUPUS ERYTHEMATOSUS
     Route: 065
  2. CYCLOPHOSPHAMIDE. [Suspect]
     Active Substance: CYCLOPHOSPHAMIDE
     Indication: AUTOIMMUNE HAEMOLYTIC ANAEMIA
     Route: 065
  3. HYDROXYCHLOROQUINE [Suspect]
     Active Substance: HYDROXYCHLOROQUINE
     Indication: SYSTEMIC LUPUS ERYTHEMATOSUS
     Route: 065

REACTIONS (10)
  - C-reactive protein increased [Recovered/Resolved]
  - Osteomyelitis [Recovered/Resolved]
  - Encephalopathy [Recovered/Resolved]
  - Mycobacterium avium complex infection [Recovered/Resolved]
  - Acid fast bacilli infection [Recovered/Resolved]
  - Leukocytosis [Recovered/Resolved]
  - Back pain [Recovered/Resolved]
  - Red blood cell sedimentation rate increased [Recovered/Resolved]
  - Extradural abscess [Recovered/Resolved]
  - Paraspinal abscess [Recovered/Resolved]
